FAERS Safety Report 10608899 (Version 3)
Quarter: 2015Q1

REPORT INFORMATION
  Report Type: Report from Study
  Country: NZ (occurrence: NZ)
  Receive Date: 20141125
  Receipt Date: 20150305
  Transmission Date: 20150720
  Serious: Yes (Other)
  Sender: FDA-Public Use
  Company Number: NZ-ABBVIE-14P-118-1188581-00

PATIENT
  Sex: Female

DRUGS (5)
  1. HUMIRA [Suspect]
     Active Substance: ADALIMUMAB
     Indication: BEHCET^S SYNDROME
     Route: 065
     Dates: start: 2009, end: 2014
  2. HUMIRA [Suspect]
     Active Substance: ADALIMUMAB
     Route: 065
     Dates: start: 201406
  3. METHOTREXATE [Concomitant]
     Active Substance: METHOTREXATE
     Indication: PRODUCT USED FOR UNKNOWN INDICATION
  4. HUMIRA [Suspect]
     Active Substance: ADALIMUMAB
     Route: 065
     Dates: start: 2014
  5. METHOTREXATE [Concomitant]
     Active Substance: METHOTREXATE
     Dates: start: 201401

REACTIONS (20)
  - Nasal ulcer [Unknown]
  - Off label use [Unknown]
  - Noninfective gingivitis [Unknown]
  - Fatigue [Unknown]
  - Malaise [Unknown]
  - Headache [Not Recovered/Not Resolved]
  - Injection site bruising [Unknown]
  - Gastric infection [Unknown]
  - General physical health deterioration [Unknown]
  - Drug effect decreased [Unknown]
  - Syncope [Unknown]
  - Ulcer [Unknown]
  - Weight decreased [Unknown]
  - Mouth ulceration [Unknown]
  - Gastric infection [Not Recovered/Not Resolved]
  - Arthralgia [Unknown]
  - Nausea [Unknown]
  - Behcet^s syndrome [Unknown]
  - Arthropathy [Unknown]
  - Joint injury [Unknown]

NARRATIVE: CASE EVENT DATE: 2014
